FAERS Safety Report 6904988-6 (Version None)
Quarter: 2010Q3

REPORT INFORMATION
  Report Type: 
  Country: None (occurrence: None)
  Receive Date: 20100804
  Receipt Date: 20090819
  Transmission Date: 20110219
  Serious: No
  Sender: FDA-Public Use
  Company Number: US-PFIZER INC-2009247214

PATIENT
  Sex: Female
  Weight: 88.4 kg

DRUGS (7)
  1. LYRICA [Suspect]
     Indication: NEURALGIA
     Dosage: 225 MG, 2X/DAY
     Dates: start: 20070101
  2. LISINOPRIL [Concomitant]
     Dosage: UNK
  3. AMITRIPTYLINE HYDROCHLORIDE [Concomitant]
     Dosage: UNK
  4. MELOXICAM [Concomitant]
     Dosage: UNK
  5. HYDROCODONE BITARTRATE [Concomitant]
     Dosage: UNK
  6. ESOMEPRAZOLE MAGNESIUM [Concomitant]
     Dosage: UNK
  7. TRAMADOL HYDROCHLORIDE [Concomitant]
     Dosage: UNK

REACTIONS (2)
  - FEELING HOT [None]
  - HYPERHIDROSIS [None]
